FAERS Safety Report 10285361 (Version 1)
Quarter: 2014Q3

REPORT INFORMATION
  Report Type: Spontaneous
  Country: RO (occurrence: RO)
  Receive Date: 20140708
  Receipt Date: 20140708
  Transmission Date: 20150326
  Serious: Yes (Other)
  Sender: FDA-Public Use
  Company Number: PHHY2014RO082829

PATIENT
  Age: 36 Year
  Sex: Male

DRUGS (4)
  1. BASILIXIMAB [Suspect]
     Active Substance: BASILIXIMAB
  2. MYCOPHENOLATE MOFETIL. [Suspect]
     Active Substance: MYCOPHENOLATE MOFETIL
  3. TACROLIMUS. [Suspect]
     Active Substance: TACROLIMUS
  4. PREDNISONE. [Suspect]
     Active Substance: PREDNISONE

REACTIONS (1)
  - Polyomavirus-associated nephropathy [Recovering/Resolving]
